FAERS Safety Report 4717286-6 (Version None)
Quarter: 2005Q3

REPORT INFORMATION
  Report Type: 
  Country: None (occurrence: None)
  Receive Date: 20050719
  Receipt Date: 20050708
  Transmission Date: 20060218
  Serious: Yes (Hospitalization)
  Sender: FDA-Public Use
  Company Number: PHBS2005NL09911

PATIENT
  Age: 35 Year
  Sex: Female
  Weight: 72 kg

DRUGS (6)
  1. ETHOSUXIMIDE [Suspect]
     Indication: GRAND MAL CONVULSION
  2. PHENOBARBITAL [Suspect]
     Indication: GRAND MAL CONVULSION
  3. VALPROIC ACID [Suspect]
     Indication: GRAND MAL CONVULSION
  4. OXCARBAZEPINE [Suspect]
     Indication: GRAND MAL CONVULSION
  5. LAMOTRIGINE [Suspect]
     Indication: GRAND MAL CONVULSION
  6. CARBAMAZEPINE [Suspect]
     Indication: GRAND MAL CONVULSION
     Route: 065

REACTIONS (3)
  - FALL [None]
  - OSTEOPENIA [None]
  - PELVIC FRACTURE [None]
